FAERS Safety Report 10142418 (Version 3)
Quarter: 2014Q4

REPORT INFORMATION
  Report Type: Report from Study
  Country: US (occurrence: US)
  Receive Date: 20140430
  Receipt Date: 20141218
  Transmission Date: 20150528
  Serious: Yes (Death)
  Sender: FDA-Public Use
  Company Number: US-BIOGENIDEC-2014BI037689

PATIENT
  Sex: Female

DRUGS (9)
  1. METFORMIN [Concomitant]
     Active Substance: METFORMIN HYDROCHLORIDE
  2. XARELTO [Concomitant]
     Active Substance: RIVAROXABAN
  3. VITAMIN D [Concomitant]
     Active Substance: CHOLECALCIFEROL
  4. TYSABRI [Suspect]
     Active Substance: NATALIZUMAB
     Indication: MULTIPLE SCLEROSIS
     Route: 042
     Dates: start: 20090625, end: 20140310
  5. ZOLOFT [Concomitant]
     Active Substance: SERTRALINE HYDROCHLORIDE
  6. GABAPENTIN. [Concomitant]
     Active Substance: GABAPENTIN
  7. METOPROLOL [Concomitant]
     Active Substance: METOPROLOL
  8. LEVEMIR [Concomitant]
     Active Substance: INSULIN DETEMIR
  9. BACLOFEN. [Concomitant]
     Active Substance: BACLOFEN

REACTIONS (2)
  - Urinary tract infection [Fatal]
  - Sepsis [Fatal]
